FAERS Safety Report 5551123-5 (Version None)
Quarter: 2007Q4

REPORT INFORMATION
  Report Type: 
  Country: None (occurrence: None)
  Receive Date: 20071212
  Receipt Date: 20071204
  Transmission Date: 20080405
  Serious: Yes (Hospitalization)
  Sender: FDA-Public Use
  Company Number: B0497686A

PATIENT
  Age: 61 Year
  Sex: Female
  Weight: 48 kg

DRUGS (5)
  1. HYCAMTIN [Suspect]
     Dosage: 2.79MGM2 WEEKLY
     Route: 042
     Dates: start: 20071031
  2. PACLITAXEL [Suspect]
     Dosage: 111MGM2 WEEKLY
     Route: 042
     Dates: start: 20071031
  3. PALLADON [Suspect]
     Dosage: 8MG PER DAY
     Route: 048
     Dates: start: 20071022
  4. NOVAMINSULFON [Suspect]
     Dosage: 1000MG THREE TIMES PER DAY
     Route: 048
     Dates: start: 20071115
  5. UNKNOWN DRUG [Suspect]
     Dosage: 52.5UG WEEKLY
     Route: 061
     Dates: start: 20071101, end: 20071101

REACTIONS (4)
  - CONFUSIONAL STATE [None]
  - DEHYDRATION [None]
  - GENERAL PHYSICAL HEALTH DETERIORATION [None]
  - OVERDOSE [None]
